FAERS Safety Report 17510401 (Version 6)
Quarter: 2020Q3

REPORT INFORMATION
  Report Type: Report from Study
  Country: US (occurrence: US)
  Receive Date: 20200306
  Receipt Date: 20200724
  Transmission Date: 20201102
  Serious: Yes (Hospitalization, Other)
  Sender: FDA-Public Use
  Company Number: US-BAYER-2020-034320

PATIENT
  Age: 54 Year
  Sex: Male
  Weight: 90.9 kg

DRUGS (13)
  1. OXYCODONE [OXYCODONE HYDROCHLORIDE] [Concomitant]
     Active Substance: OXYCODONE HYDROCHLORIDE
     Indication: PAIN
     Dosage: 5 MG, PRN
     Dates: start: 20200113
  2. METFORMIN [Concomitant]
     Active Substance: METFORMIN HYDROCHLORIDE
     Dosage: 1000 MG, BID
  3. NALOXONE HYDROCHLORIDE. [Concomitant]
     Active Substance: NALOXONE HYDROCHLORIDE
     Indication: PROPHYLAXIS
     Dosage: 5 MG
     Dates: start: 20200127
  4. PANTOPRAZOLE [Concomitant]
     Active Substance: PANTOPRAZOLE
     Indication: GASTROOESOPHAGEAL REFLUX DISEASE
     Dosage: UNK UNK, QD (DAILY)
  5. COPANLISIB. [Suspect]
     Active Substance: COPANLISIB
     Indication: RECTAL CANCER
     Dosage: 60 MG ON DAYS 1, 8 AND 15
     Route: 042
     Dates: start: 20200128
  6. COPANLISIB. [Suspect]
     Active Substance: COPANLISIB
     Indication: RECTAL CANCER
     Dosage: 120 MG
     Route: 042
     Dates: start: 20200204
  7. NIVOLUMAB [Suspect]
     Active Substance: NIVOLUMAB
     Indication: RECTAL CANCER
     Dosage: 240 MG
     Route: 042
     Dates: start: 20200211
  8. OXYCODONE [OXYCODONE HYDROCHLORIDE] [Concomitant]
     Active Substance: OXYCODONE HYDROCHLORIDE
     Indication: PAIN
     Dosage: 10 MG, BID
     Dates: start: 20200117
  9. METFORMIN [Concomitant]
     Active Substance: METFORMIN HYDROCHLORIDE
     Dosage: 1000 MG, BID
  10. PREGABALIN. [Concomitant]
     Active Substance: PREGABALIN
     Indication: PAIN
     Dosage: 100 MG, TID
     Dates: start: 20200127
  11. NIVOLUMAB [Suspect]
     Active Substance: NIVOLUMAB
     Indication: RECTAL CANCER
     Dosage: 480 MG ON DAY 1, 240 MG ON DAY 15
     Route: 042
     Dates: start: 20200128
  12. COPANLISIB. [Suspect]
     Active Substance: COPANLISIB
     Indication: RECTAL CANCER
     Dosage: 60 MG ON DAYS 1, 8 AND 15UNK
     Route: 042
     Dates: start: 20200225
  13. NIVOLUMAB [Suspect]
     Active Substance: NIVOLUMAB
     Indication: RECTAL CANCER
     Dosage: 480 MG IV ON DAY 1, 240 MG ON DAY 15
     Route: 042
     Dates: start: 20200225

REACTIONS (2)
  - Pleural effusion [Recovering/Resolving]
  - Glucose tolerance impaired [Recovering/Resolving]

NARRATIVE: CASE EVENT DATE: 20200211
